FAERS Safety Report 11783511 (Version 2)
Quarter: 2016Q1

REPORT INFORMATION
  Report Type: Spontaneous
  Country: US (occurrence: US)
  Receive Date: 20151127
  Receipt Date: 20160121
  Transmission Date: 20160525
  Serious: Yes (Other)
  Sender: FDA-Public Use
  Company Number: US-BAYER-2015-468111

PATIENT
  Age: 67 Year
  Sex: Male
  Weight: 59.86 kg

DRUGS (3)
  1. BAYER LOW DOSE [Suspect]
     Active Substance: ASPIRIN
     Indication: BLOOD DISORDER
  2. APIXABAN [Concomitant]
     Active Substance: APIXABAN
     Dosage: UNK
  3. BAYER LOW DOSE [Suspect]
     Active Substance: ASPIRIN
     Indication: CARDIAC DISORDER
     Dosage: 1 DF, QD
     Route: 048

REACTIONS (3)
  - Choking [Recovered/Resolved]
  - Product quality issue [Recovered/Resolved]
  - Product use issue [None]

NARRATIVE: CASE EVENT DATE: 20151111
